FAERS Safety Report 7315816-1 (Version None)
Quarter: 2011Q1

REPORT INFORMATION
  Report Type: 
  Country: None (occurrence: None)
  Receive Date: 20110119
  Receipt Date: 20100610
  Transmission Date: 20110831
  Serious: Yes (Other)
  Sender: FDA-Public Use
  Company Number: A-NJ2010-37284

PATIENT
  Age: 52 Year
  Sex: Female

DRUGS (10)
  1. NORETHINDRONE [Concomitant]
  2. TRACLEER [Suspect]
     Indication: PULMONARY ARTERIAL HYPERTENSION
     Dosage: 62.5 MG, BID, ORAL
     Route: 048
     Dates: start: 20100424
  3. ADVIL (IBUPROFEN) [Concomitant]
  4. CALTRATE 600+D CALCIUM CARBONATE, ERGOCALCIFEROL) [Concomitant]
  5. ZOCOR [Concomitant]
  6. PEPCID [Concomitant]
  7. VENTOLIN [Concomitant]
  8. ASPIRIN [Concomitant]
  9. CLARITIN [Concomitant]
  10. MULTIVITAMIN [Concomitant]

REACTIONS (5)
  - LIVER FUNCTION TEST ABNORMAL [None]
  - ASPARTATE AMINOTRANSFERASE INCREASED [None]
  - BLOOD ALKALINE PHOSPHATASE INCREASED [None]
  - ALANINE AMINOTRANSFERASE INCREASED [None]
  - CHROMATURIA [None]
